FAERS Safety Report 15569133 (Version 1)
Quarter: 2018Q4

REPORT INFORMATION
  Report Type: Spontaneous
  Country: HR (occurrence: HR)
  Receive Date: 20181031
  Receipt Date: 20181031
  Transmission Date: 20190205
  Serious: Yes (Other)
  Sender: FDA-Public Use
  Company Number: HR-TEVA-2018-HR-970693

PATIENT
  Age: 26 Year
  Sex: Female

DRUGS (2)
  1. SEASONIQUE [Suspect]
     Active Substance: ETHINYL ESTRADIOL\LEVONORGESTREL
     Indication: ENDOMETRIOSIS
     Dosage: DOSAGE FORMS IS 0,15 LEVONOGESTREL / 0,03 MG ETHINILESTRADIOL + 0,01 MG ETHINILESTRADIOL
     Route: 048
     Dates: start: 201802
  2. RANITIDIN [Concomitant]
     Active Substance: RANITIDINE HYDROCHLORIDE

REACTIONS (2)
  - Vaginal haemorrhage [Unknown]
  - Leukopenia [Unknown]

NARRATIVE: CASE EVENT DATE: 2018
